FAERS Safety Report 6880873-3 (Version None)
Quarter: 2010Q3

REPORT INFORMATION
  Report Type: 
  Country: None (occurrence: None)
  Receive Date: 20100728
  Receipt Date: 20100713
  Transmission Date: 20110219
  Serious: Yes (Hospitalization)
  Sender: FDA-Public Use
  Company Number: FR-GILEAD-E2B_00000633

PATIENT
  Age: 67 Year
  Sex: Male

DRUGS (8)
  1. AMBRISENTAN [Suspect]
     Indication: PULMONARY ARTERIAL HYPERTENSION
     Dosage: 5MG PER DAY
     Route: 048
     Dates: start: 20100201
  2. BISOPROLOL [Concomitant]
  3. EUPRESSYL [Concomitant]
  4. AMAREL [Concomitant]
  5. ALLOPURINOL [Concomitant]
  6. LERCAN [Concomitant]
  7. GLUCOPHAGE [Concomitant]
  8. REVATIO [Concomitant]
     Indication: PULMONARY ARTERIAL HYPERTENSION
     Dates: start: 20100201

REACTIONS (2)
  - OEDEMA PERIPHERAL [None]
  - PURPURA [None]
